FAERS Safety Report 4756674-9 (Version None)
Quarter: 2005Q3

REPORT INFORMATION
  Report Type: 
  Country: None (occurrence: None)
  Receive Date: 20050830
  Receipt Date: 20050113
  Transmission Date: 20060218
  Serious: Yes (Death)
  Sender: FDA-Public Use
  Company Number: ZA-GLAXOSMITHKLINE-B0364991A

PATIENT
  Age: 68 Year
  Sex: Male

DRUGS (4)
  1. ZYBAN [Suspect]
     Dosage: 150MG TWICE PER DAY
  2. LOSARTAN POTASSIUM [Concomitant]
     Dosage: 50MG PER DAY
     Route: 048
     Dates: start: 19870101, end: 20040101
  3. DISPRIN [Concomitant]
     Dates: start: 19870101, end: 20040101
  4. PRAVASTATIN [Concomitant]
     Dosage: 10MG PER DAY
     Route: 048
     Dates: start: 19870101, end: 20040101

REACTIONS (1)
  - COMPLETED SUICIDE [None]
